FAERS Safety Report 19224694 (Version 1)
Quarter: 2021Q2

REPORT INFORMATION
  Report Type: Spontaneous
  Country: US (occurrence: US)
  Receive Date: 20210505
  Receipt Date: 20210505
  Transmission Date: 20210717
  Serious: No
  Sender: FDA-Public Use
  Company Number: US-ROCHE-2647519

PATIENT
  Age: 71 Year
  Sex: Male

DRUGS (5)
  1. ESBRIET [Suspect]
     Active Substance: PIRFENIDONE
     Indication: IDIOPATHIC PULMONARY FIBROSIS
     Dosage: 267 MG TABLETS, 3 PER DOSE, ONGOING: YES
     Route: 048
     Dates: start: 20200629
  2. ESBRIET [Suspect]
     Active Substance: PIRFENIDONE
     Dosage: WAS TAKING 3 TABS AT BEDTIME
     Route: 048
  3. ESBRIET [Suspect]
     Active Substance: PIRFENIDONE
     Dosage: ONLY TAKING 1 TAB AT BEDTIME
     Route: 048
     Dates: start: 20200102
  4. ESBRIET [Suspect]
     Active Substance: PIRFENIDONE
     Indication: IDIOPATHIC PULMONARY FIBROSIS
     Dosage: THREE TIMES A DAY ONGOING: YES
     Route: 048
     Dates: start: 20200617
  5. ESBRIET [Suspect]
     Active Substance: PIRFENIDONE
     Dosage: WAS TAKING 1?2 TABS IN THE MORNING;ONGOING:NO
     Route: 048
     Dates: start: 202006

REACTIONS (6)
  - Off label use [Unknown]
  - Hypophagia [Unknown]
  - Intentional product misuse [Unknown]
  - Cardiac disorder [Unknown]
  - Somnolence [Not Recovered/Not Resolved]
  - Fatigue [Not Recovered/Not Resolved]

NARRATIVE: CASE EVENT DATE: 20200617
